FAERS Safety Report 21281245 (Version 1)
Quarter: 2022Q3

REPORT INFORMATION
  Report Type: Spontaneous
  Country: US (occurrence: US)
  Receive Date: 20220901
  Receipt Date: 20220901
  Transmission Date: 20221027
  Serious: No
  Sender: FDA-Public Use
  Company Number: US-ALLERGAN-2132500US

PATIENT
  Sex: Female

DRUGS (7)
  1. FETZIMA [Suspect]
     Active Substance: LEVOMILNACIPRAN HYDROCHLORIDE
     Indication: Major depression
     Dosage: 60 MG
     Dates: end: 20210904
  2. SEROQUEL [Concomitant]
     Active Substance: QUETIAPINE FUMARATE
     Dosage: 50MG AM, 50MG LUNCHTIME, 150MG NIGHT TIME
  3. NEURONTIN [Concomitant]
     Active Substance: GABAPENTIN
     Dosage: 400 MG, TID
  4. VALIUM [Concomitant]
     Active Substance: DIAZEPAM
     Dosage: 5 MG AM, 5 MG LUNCHTIME, 10 MG NIGHT TIME
  5. PROPRANOLOL [Concomitant]
     Active Substance: PROPRANOLOL HYDROCHLORIDE
     Dosage: 10 MG AM, 10 MG LUNCHTIME, 20 MG AT NIGHT
  6. PROZAC [Concomitant]
     Active Substance: FLUOXETINE HYDROCHLORIDE
     Dosage: 10 MG, QD
  7. RITALIN [Concomitant]
     Active Substance: METHYLPHENIDATE HYDROCHLORIDE
     Dosage: 20 MG, TID

REACTIONS (13)
  - Condition aggravated [Unknown]
  - Gait disturbance [Recovering/Resolving]
  - Muscle tightness [Recovered/Resolved]
  - Illness [Recovering/Resolving]
  - Balance disorder [Recovering/Resolving]
  - Gait inability [Recovering/Resolving]
  - Fall [Unknown]
  - Visual impairment [Recovering/Resolving]
  - Lacrimation increased [Unknown]
  - Dry mouth [Recovering/Resolving]
  - Fatigue [Not Recovered/Not Resolved]
  - Somnolence [Not Recovered/Not Resolved]
  - Diarrhoea [Unknown]
